FAERS Safety Report 16049156 (Version 3)
Quarter: 2019Q1

REPORT INFORMATION
  Report Type: Spontaneous
  Country: US (occurrence: US)
  Receive Date: 20190307
  Receipt Date: 20190319
  Transmission Date: 20190418
  Serious: Yes (Other)
  Sender: FDA-Public Use
  Company Number: PHEH2019US009485

PATIENT
  Sex: Male

DRUGS (1)
  1. AMOXICILLIN AND CLAVULANATE POTASSIUM TABLETS USP [Suspect]
     Active Substance: AMOXICILLIN\CLAVULANATE POTASSIUM
     Indication: ANORECTAL DISCOMFORT
     Dosage: UNK
     Route: 065

REACTIONS (7)
  - Anorectal discomfort [Unknown]
  - Fistula inflammation [Unknown]
  - Coeliac disease [Unknown]
  - Condition aggravated [Unknown]
  - Fistula discharge [Unknown]
  - Product label issue [Unknown]
  - Malabsorption [Unknown]

NARRATIVE: CASE EVENT DATE: 20190227
